FAERS Safety Report 7890060-8 (Version None)
Quarter: 2011Q4

REPORT INFORMATION
  Report Type: 
  Country: None (occurrence: None)
  Receive Date: 20111103
  Receipt Date: 20111027
  Transmission Date: 20120403
  Serious: Yes (Other)
  Sender: FDA-Public Use
  Company Number: ES-ROCHE-1002023

PATIENT
  Age: 76 Year
  Sex: Female

DRUGS (1)
  1. LUCENTIS [Suspect]
     Indication: AGE-RELATED MACULAR DEGENERATION
     Route: 050
     Dates: start: 20110925

REACTIONS (7)
  - ENDOPHTHALMITIS [None]
  - HYPOPYON [None]
  - EYE PAIN [None]
  - VISUAL ACUITY REDUCED [None]
  - LEUKOCYTOSIS [None]
  - VITREOUS OPACITIES [None]
  - OCULAR HYPERAEMIA [None]
